FAERS Safety Report 24663636 (Version 3)
Quarter: 2025Q1

REPORT INFORMATION
  Report Type: Spontaneous
  Country: US (occurrence: US)
  Receive Date: 20241126
  Receipt Date: 20250203
  Transmission Date: 20250408
  Serious: Yes (Hospitalization, Other)
  Sender: BIOVITRUM
  Company Number: US-BIOVITRUM-2024-US-008831

PATIENT
  Age: 75 Year
  Sex: Female

DRUGS (2)
  1. VONJO [Suspect]
     Active Substance: PACRITINIB
     Indication: Myelofibrosis
     Route: 048
  2. VONJO [Suspect]
     Active Substance: PACRITINIB
     Route: 048

REACTIONS (6)
  - Off label use [Recovered/Resolved]
  - Vomiting [Unknown]
  - Illness [Unknown]
  - Dyspnoea [Unknown]
  - Myocardial infarction [Unknown]
  - Pneumonia [Unknown]
